FAERS Safety Report 9095599 (Version 4)
Quarter: 2013Q2

REPORT INFORMATION
  Report Type: Spontaneous
  Country: BR (occurrence: BR)
  Receive Date: 20130219
  Receipt Date: 20130429
  Transmission Date: 20140414
  Serious: Yes (Death, Other)
  Sender: FDA-Public Use
  Company Number: BR-BAYER-2013-012510

PATIENT
  Sex: 0

DRUGS (7)
  1. MAGNEVISTAN [Suspect]
     Indication: NUCLEAR MAGNETIC RESONANCE IMAGING BRAIN
     Dosage: UNK
     Route: 042
     Dates: start: 20130128, end: 20130128
  2. SALINE [Interacting]
     Dosage: UNK
     Route: 042
     Dates: start: 20130128, end: 20130128
  3. SALINE [Interacting]
     Dosage: UNK
     Route: 042
     Dates: start: 20130128, end: 20130128
  4. SALINE [Interacting]
     Dosage: UNK
     Route: 042
     Dates: start: 20130128, end: 20130128
  5. SALINE [Interacting]
     Dosage: UNK
     Route: 042
     Dates: start: 20130128, end: 20130128
  6. SALINE [Interacting]
     Dosage: UNK
     Route: 042
     Dates: start: 20130128, end: 20130128
  7. SALINE [Interacting]
     Dosage: UNK
     Route: 042
     Dates: start: 20130128, end: 20130128

REACTIONS (13)
  - Pulmonary embolism [Fatal]
  - Cardio-respiratory arrest [Fatal]
  - Formication [None]
  - Retching [None]
  - Convulsion [None]
  - Pain [None]
  - Hepatic function abnormal [None]
  - Transaminases increased [None]
  - Drug interaction [None]
  - Chemical poisoning [None]
  - Platelet count decreased [None]
  - Haemolysis [None]
  - Blood lactic acid increased [None]
